FAERS Safety Report 9401916 (Version 2)
Quarter: 2013Q3

REPORT INFORMATION
  Report Type: Spontaneous
  Country: US (occurrence: US)
  Receive Date: 20130716
  Receipt Date: 20130829
  Transmission Date: 20140515
  Serious: No
  Sender: FDA-Public Use
  Company Number: US-PFIZER INC-2013206439

PATIENT
  Age: 72 Year
  Sex: Male

DRUGS (4)
  1. NITROSTAT [Suspect]
     Indication: CHEST PAIN
     Dosage: 0.4 MG, AS NEEDED (1 TAB PRN)
     Route: 060
     Dates: start: 20130511, end: 201306
  2. COREG [Concomitant]
     Dosage: UNK
  3. PRAVASTATIN [Concomitant]
     Dosage: UNK
  4. ASPIRIN [Concomitant]
     Dosage: UNK

REACTIONS (3)
  - Dyspepsia [Unknown]
  - Incorrect route of drug administration [Unknown]
  - Application site pain [Unknown]
